FAERS Safety Report 17669349 (Version 4)
Quarter: 2024Q3

REPORT INFORMATION
  Report Type: Spontaneous
  Country: DE (occurrence: DE)
  Receive Date: 20200415
  Receipt Date: 20240918
  Transmission Date: 20241017
  Serious: Yes (Hospitalization, Other)
  Sender: MYLAN
  Company Number: DE-BAXTER-2020BAX005542

PATIENT
  Age: 70 Year
  Sex: Male

DRUGS (30)
  1. PREDNISOLONE [Suspect]
     Active Substance: PREDNISOLONE
     Indication: Diffuse large B-cell lymphoma
     Dosage: 100 MG, CYCLIC (6 CYCLES) (6 COURSES OF MONTHLY ADMINISTERED R-CHOP)
     Route: 065
  2. PREDNISOLONE [Suspect]
     Active Substance: PREDNISOLONE
     Dosage: (CLASSICAL R-CHOP REGIMEN WAS ADMINISTERED IN 75 % DOSE REDUCTION DUE TO COMORBIDITIES. R-CHOP
     Route: 065
  3. DOXORUBICIN [Suspect]
     Active Substance: DOXORUBICIN
     Indication: Diffuse large B-cell lymphoma
     Dosage: 20 MG/M2, CYCLIC (6 CYCLES)
     Route: 065
  4. DOXORUBICIN [Suspect]
     Active Substance: DOXORUBICIN
     Indication: Chemotherapy
     Dosage: (CLASSICAL R-CHOP REGIMEN WAS ADMINISTERED IN 75% DOSE REDUCTION DUE TO COMORBIDITIES.R-CHOP REG
     Route: 065
  5. GEMCITABINE [Suspect]
     Active Substance: GEMCITABINE
     Indication: Diffuse large B-cell lymphoma
     Dosage: 1000 MILLIGRAM/SQ. METER, AS A PART OF R-GEM/OX REGIMEN
     Route: 065
  6. OXALIPLATIN [Suspect]
     Active Substance: OXALIPLATIN
     Indication: Diffuse large B-cell lymphoma
     Dosage: 1000 MILLIGRAM/SQ. METER (AS A PART OF R-GEM/OX REGIMEN)
     Route: 065
  7. VINCRISTINE [Suspect]
     Active Substance: VINCRISTINE
     Indication: Diffuse large B-cell lymphoma
     Dosage: 1.4 MILLIGRAM/SQ. METER, CYCLE, 1.4 MG/M2, CYCLIC (6 CYCLES)
     Route: 065
  8. VINCRISTINE [Suspect]
     Active Substance: VINCRISTINE
     Dosage: (CLASSICAL R-CHOP REGIMEN WAS ADMINISTERED IN 75 % DOSE REDUCTION DUE TO COMORBIDITIES. R-CHOP
     Route: 065
  9. CARMUSTINE [Suspect]
     Active Substance: CARMUSTINE
     Indication: Diffuse large B-cell lymphoma
     Dosage: AS A PART OF DEXA-BEAM REGIMEN
     Route: 065
  10. CARMUSTINE [Suspect]
     Active Substance: CARMUSTINE
     Indication: Chemotherapy
  11. CYCLOPHOSPHAMIDE [Suspect]
     Active Substance: CYCLOPHOSPHAMIDE
     Indication: Diffuse large B-cell lymphoma
     Dosage: (CLASSICAL R-CHOP REGIMEN WAS ADMINISTERED IN 75 % DOSE REDUCTION DUE TO COMORBIDITIES. R-CHOP
     Route: 065
  12. CYCLOPHOSPHAMIDE [Suspect]
     Active Substance: CYCLOPHOSPHAMIDE
     Dosage: 750 MILLIGRAM/SQ. METER, CYCLE, 750 MG/M2, CYCLIC (6 CYCLES)
     Route: 065
  13. CYCLOPHOSPHAMIDE [Suspect]
     Active Substance: CYCLOPHOSPHAMIDE
     Indication: Diffuse large B-cell lymphoma
     Dosage: 750 MILLIGRAM/SQ. METER (6 COURSES OF MONTHLY ADMINISTERED R-CHOP)
     Route: 065
  14. DEXAMETHASONE [Suspect]
     Active Substance: DEXAMETHASONE
     Indication: Diffuse large B-cell lymphoma
     Dosage: 24 MILLIGRAM (AS A PART OF DEXA-BEAM REGIMEN)
     Route: 065
  15. DEXAMETHASONE [Suspect]
     Active Substance: DEXAMETHASONE
     Indication: Chemotherapy
     Dosage: 16 MILLIGRAM (AS A PART OF R-DHAP REGIMEN)
     Route: 065
  16. MELPHALAN [Suspect]
     Active Substance: MELPHALAN
     Indication: Diffuse large B-cell lymphoma
     Dosage: 20 MILLIGRAM/SQ. METER (AS A PART OF DEXA-BEAM REGIMEN)
     Route: 065
  17. MELPHALAN [Suspect]
     Active Substance: MELPHALAN
     Indication: Chemotherapy
  18. RITUXIMAB [Suspect]
     Active Substance: RITUXIMAB
     Indication: Diffuse large B-cell lymphoma
     Dosage: 6 COURSES OF MONTHLY ADMINISTERED R-CHOP
     Route: 065
  19. RITUXIMAB [Suspect]
     Active Substance: RITUXIMAB
     Dosage: (CLASSICAL R-CHOP REGIMEN WAS ADMINISTERED IN 75% DOSE REDUCTION DUE TO COMORBIDITIES.R-CHOP)
     Route: 065
  20. RITUXIMAB [Suspect]
     Active Substance: RITUXIMAB
     Dosage: 375 MG/M2, CYCLIC (6 CYCLES)
     Route: 042
  21. RITUXIMAB [Suspect]
     Active Substance: RITUXIMAB
     Dosage: AS A PART OF R-DHAP REGIMEN
     Route: 065
  22. CYTARABINE [Suspect]
     Active Substance: CYTARABINE
     Indication: Diffuse large B-cell lymphoma
     Dosage: 100 MILLIGRAM/SQ. METER, BID (AS A PART OF DEXA-BEAM REGIMEN; OVER 4 DAYS)
     Route: 065
  23. CYTARABINE [Suspect]
     Active Substance: CYTARABINE
     Indication: Chemotherapy
     Dosage: AS A PART OF R-DHAP REGIMEN
     Route: 065
  24. CISPLATIN [Suspect]
     Active Substance: CISPLATIN
     Indication: Diffuse large B-cell lymphoma
     Dosage: 100 MILLIGRAM/SQ. METER, AS A PART OF R-DHAP REGIMEN
     Route: 065
  25. CISPLATIN [Suspect]
     Active Substance: CISPLATIN
     Indication: Chemotherapy
  26. ETOPOSIDE [Suspect]
     Active Substance: ETOPOSIDE
     Indication: Diffuse large B-cell lymphoma
     Dosage: 250 MILLIGRAM/SQ. METER, QD (AS A PART OF DEXA-BEAM REGIMEN; OVER 4 DAYS)
     Route: 065
  27. ETOPOSIDE [Suspect]
     Active Substance: ETOPOSIDE
     Indication: Chemotherapy
  28. BENDAMUSTINE [Suspect]
     Active Substance: BENDAMUSTINE
     Indication: Diffuse large B-cell lymphoma
     Dosage: 90 MILLIGRAM/SQ. METER
     Route: 065
  29. THIOTEPA [Suspect]
     Active Substance: THIOTEPA
     Indication: Diffuse large B-cell lymphoma
     Dosage: UNK
     Route: 065
  30. CARBOPLATIN [Suspect]
     Active Substance: CARBOPLATIN
     Indication: Diffuse large B-cell lymphoma
     Dosage: UNK
     Route: 065

REACTIONS (4)
  - Thrombocytopenia [Unknown]
  - Myelosuppression [Unknown]
  - Therapeutic product effect decreased [Unknown]
  - Off label use [Unknown]
